FAERS Safety Report 19678006 (Version 1)
Quarter: 2021Q3

REPORT INFORMATION
  Report Type: Spontaneous
  Country: PL (occurrence: PL)
  Receive Date: 20210810
  Receipt Date: 20210810
  Transmission Date: 20211014
  Serious: Yes (Death, Hospitalization)
  Sender: FDA-Public Use
  Company Number: PL-ABBVIE-21K-129-4002039-00

PATIENT
  Age: 74 Year
  Sex: Male

DRUGS (39)
  1. VENETOCLAX. [Suspect]
     Active Substance: VENETOCLAX
     Route: 058
     Dates: start: 20210614
  2. PEVONEDISTAT [Suspect]
     Active Substance: PEVONEDISTAT
     Indication: ACUTE MYELOID LEUKAEMIA
     Route: 058
     Dates: start: 20210614
  3. PEVONEDISTAT [Suspect]
     Active Substance: PEVONEDISTAT
     Route: 048
     Dates: start: 20210711
  4. CONCOR COR [Concomitant]
     Active Substance: BISOPROLOL FUMARATE
     Indication: PRODUCT USED FOR UNKNOWN INDICATION
     Route: 065
     Dates: start: 2000
  5. MILURIT [Concomitant]
     Active Substance: ALLOPURINOL
     Indication: PRODUCT USED FOR UNKNOWN INDICATION
     Route: 065
     Dates: start: 20210614, end: 20210623
  6. CALCIUM CHLORIDE. [Concomitant]
     Active Substance: CALCIUM CHLORIDE
     Indication: PRODUCT USED FOR UNKNOWN INDICATION
     Route: 048
     Dates: start: 20210621, end: 20210623
  7. FUROSEMIDUM [Concomitant]
     Active Substance: FUROSEMIDE
     Indication: PRODUCT USED FOR UNKNOWN INDICATION
     Route: 065
     Dates: start: 20210614, end: 20210623
  8. LISINOPRIL. [Concomitant]
     Active Substance: LISINOPRIL
     Indication: PRODUCT USED FOR UNKNOWN INDICATION
     Route: 065
     Dates: start: 2000
  9. AZACITIDINE. [Suspect]
     Active Substance: AZACITIDINE
     Route: 048
     Dates: start: 20210711
  10. PEVONEDISTAT [Suspect]
     Active Substance: PEVONEDISTAT
     Route: 048
     Dates: start: 20210616, end: 20210623
  11. GLICLAZIDE [Concomitant]
     Active Substance: GLICLAZIDE
     Indication: DIABETES MELLITUS
     Route: 065
     Dates: start: 2016
  12. NACL [Concomitant]
     Active Substance: SODIUM CHLORIDE
     Indication: PRODUCT USED FOR UNKNOWN INDICATION
     Route: 065
     Dates: start: 20210614, end: 20210623
  13. AZACITIDINE. [Suspect]
     Active Substance: AZACITIDINE
     Indication: ACUTE MYELOID LEUKAEMIA
     Route: 058
     Dates: start: 20210614, end: 20210614
  14. METOCLOPRAMIDUM [Concomitant]
     Indication: PRODUCT USED FOR UNKNOWN INDICATION
     Route: 048
     Dates: start: 20210628
  15. HEVIRAN [Concomitant]
     Active Substance: ACYCLOVIR
     Indication: PRODUCT USED FOR UNKNOWN INDICATION
     Route: 065
     Dates: start: 20210608
  16. FLUMYCON [Concomitant]
     Active Substance: FLUCONAZOLE
     Indication: PRODUCT USED FOR UNKNOWN INDICATION
     Route: 065
     Dates: start: 20210624
  17. LEVOFLOXACIN. [Concomitant]
     Active Substance: LEVOFLOXACIN
     Indication: PRODUCT USED FOR UNKNOWN INDICATION
     Route: 065
     Dates: start: 20210608
  18. VENETOCLAX. [Suspect]
     Active Substance: VENETOCLAX
     Route: 048
     Dates: start: 20210615, end: 20210615
  19. AZACITIDINE. [Suspect]
     Active Substance: AZACITIDINE
     Route: 048
     Dates: start: 20210615, end: 20210615
  20. PEVONEDISTAT [Suspect]
     Active Substance: PEVONEDISTAT
     Route: 048
     Dates: start: 20210615, end: 20210615
  21. POTASSIUM CHLORIDE. [Concomitant]
     Active Substance: POTASSIUM CHLORIDE
     Indication: PRODUCT USED FOR UNKNOWN INDICATION
     Route: 065
     Dates: start: 20210614, end: 20210623
  22. SIMVAHEXAL [Concomitant]
     Active Substance: SIMVASTATIN
     Indication: PRODUCT USED FOR UNKNOWN INDICATION
     Route: 065
     Dates: start: 2016
  23. ONDANSETRON [Concomitant]
     Active Substance: ONDANSETRON
     Indication: PRODUCT USED FOR UNKNOWN INDICATION
     Route: 065
     Dates: start: 20210614, end: 20210622
  24. AZACITIDINE. [Suspect]
     Active Substance: AZACITIDINE
     Route: 048
     Dates: start: 20210616, end: 20210623
  25. RASBURICASE RECOMBINANT [Concomitant]
     Active Substance: RASBURICASE
     Indication: PRODUCT USED FOR UNKNOWN INDICATION
     Route: 065
     Dates: start: 20210615, end: 20210616
  26. EXACYL [Concomitant]
     Active Substance: TRANEXAMIC ACID
     Indication: PRODUCT USED FOR UNKNOWN INDICATION
     Route: 065
     Dates: start: 20210608
  27. DIURESIN [Concomitant]
     Active Substance: INDAPAMIDE
     Indication: PRODUCT USED FOR UNKNOWN INDICATION
     Route: 065
     Dates: start: 2000
  28. AZACITIDINE. [Suspect]
     Active Substance: AZACITIDINE
     Route: 048
     Dates: start: 20210614, end: 20210614
  29. METFORMIN HYDROCHLORIDE. [Concomitant]
     Active Substance: METFORMIN HYDROCHLORIDE
     Indication: DIABETES MELLITUS
     Route: 065
     Dates: start: 2016
  30. VENETOCLAX. [Suspect]
     Active Substance: VENETOCLAX
     Route: 048
     Dates: start: 20210616, end: 20210623
  31. AMLOZEK [Concomitant]
     Active Substance: AMLODIPINE BESYLATE
     Indication: PRODUCT USED FOR UNKNOWN INDICATION
     Route: 065
     Dates: start: 2000
  32. MAGNESIUM SULFATE. [Concomitant]
     Active Substance: MAGNESIUM SULFATE
     Indication: PRODUCT USED FOR UNKNOWN INDICATION
     Route: 065
     Dates: start: 20210614, end: 20210623
  33. VENETOCLAX. [Suspect]
     Active Substance: VENETOCLAX
     Indication: ACUTE MYELOID LEUKAEMIA
     Route: 048
     Dates: start: 20210624
  34. VENETOCLAX. [Suspect]
     Active Substance: VENETOCLAX
     Route: 048
     Dates: start: 20210711
  35. VENETOCLAX. [Suspect]
     Active Substance: VENETOCLAX
     Route: 048
     Dates: start: 20210614, end: 20210614
  36. AZACITIDINE. [Suspect]
     Active Substance: AZACITIDINE
     Route: 048
     Dates: start: 20210624
  37. PEVONEDISTAT [Suspect]
     Active Substance: PEVONEDISTAT
     Route: 048
     Dates: start: 20210614, end: 20210614
  38. PEVONEDISTAT [Suspect]
     Active Substance: PEVONEDISTAT
     Route: 048
     Dates: start: 20210624
  39. SOLUTIO RINGERI [Concomitant]
     Indication: PRODUCT USED FOR UNKNOWN INDICATION
     Route: 065
     Dates: start: 20210614, end: 20210623

REACTIONS (4)
  - Sepsis [Fatal]
  - Infection susceptibility increased [Unknown]
  - Immunosuppression [Unknown]
  - Multiple organ dysfunction syndrome [Fatal]

NARRATIVE: CASE EVENT DATE: 20210706
